FAERS Safety Report 11694645 (Version 1)
Quarter: 2015Q4

REPORT INFORMATION
  Report Type: Spontaneous
  Country: US (occurrence: None)
  Receive Date: 20151103
  Receipt Date: 20151103
  Transmission Date: 20160304
  Serious: Yes (Hospitalization, Other)
  Sender: FDA-Public Use
  Company Number: US-MDT-ADR-2015-02071

PATIENT
  Sex: Female

DRUGS (1)
  1. BACLOFEN INTRATHECAL [Suspect]
     Active Substance: BACLOFEN
     Indication: PAIN

REACTIONS (15)
  - Insomnia [None]
  - Intervertebral disc calcification [None]
  - Diplegia [None]
  - Pain [None]
  - Escherichia infection [None]
  - Hypoaesthesia [None]
  - Drug withdrawal syndrome [None]
  - No therapeutic response [None]
  - Haematoma [None]
  - Faecal incontinence [None]
  - Loss of control of legs [None]
  - Abasia [None]
  - Medical device site infection [None]
  - Spinal column stenosis [None]
  - Implant site extravasation [None]
